FAERS Safety Report 17804573 (Version 1)
Quarter: 2020Q2

REPORT INFORMATION
  Report Type: Spontaneous
  Country: DE (occurrence: DE)
  Receive Date: 20200519
  Receipt Date: 20200519
  Transmission Date: 20200714
  Serious: Yes (Death, Other)
  Sender: FDA-Public Use
  Company Number: NVSC2020DE136399

PATIENT

DRUGS (3)
  1. CARBOPLATIN. [Suspect]
     Active Substance: CARBOPLATIN
     Indication: OVARIAN CANCER
     Dosage: AUC 4, QD (ON DAY 1, EVERY 3 WEEKS FOR 6 CYCLES)
     Route: 042
  2. GEMCITABINE. [Suspect]
     Active Substance: GEMCITABINE
     Indication: OVARIAN CANCER
     Dosage: 1000 MG/M2, QD  (ON DAY 1 + 8, EVERY 3 WEEKS FOR 6 CYCLES)
     Route: 042
  3. BEVACIZUMAB. [Suspect]
     Active Substance: BEVACIZUMAB
     Indication: OVARIAN CANCER
     Dosage: 15 MG/KG, QD (ON DAY 1, EVERY 3 WEEKS FOR 6 CYCLES)
     Route: 042

REACTIONS (1)
  - Large intestine perforation [Fatal]
